FAERS Safety Report 13216118 (Version 1)
Quarter: 2017Q1

REPORT INFORMATION
  Report Type: Spontaneous
  Country: US (occurrence: US)
  Receive Date: 20170210
  Receipt Date: 20170210
  Transmission Date: 20170428
  Serious: No
  Sender: FDA-Public Use
  Company Number: US-ROCHE-1809664

PATIENT
  Sex: Female
  Weight: 109.23 kg

DRUGS (1)
  1. XOLAIR [Suspect]
     Active Substance: OMALIZUMAB
     Indication: ASTHMA
     Route: 058
     Dates: start: 20150722

REACTIONS (3)
  - Drug administration error [Unknown]
  - No adverse event [Unknown]
  - Accidental overdose [Unknown]
